FAERS Safety Report 6943731-1 (Version None)
Quarter: 2010Q3

REPORT INFORMATION
  Report Type: 
  Country: None (occurrence: None)
  Receive Date: 20100826
  Receipt Date: 20100820
  Transmission Date: 20110219
  Serious: Yes (Hospitalization)
  Sender: FDA-Public Use
  Company Number: A0787832A

PATIENT
  Age: 61 Year
  Sex: Female
  Weight: 77.3 kg

DRUGS (1)
  1. AVANDIA [Suspect]
     Dosage: 2MG PER DAY
     Route: 048
     Dates: start: 20050101, end: 20061201

REACTIONS (6)
  - CEREBROVASCULAR ACCIDENT [None]
  - DYSPHAGIA [None]
  - HEADACHE [None]
  - HEMIPARESIS [None]
  - HERPES ZOSTER [None]
  - MOBILITY DECREASED [None]
